FAERS Safety Report 7788354-X (Version None)
Quarter: 2011Q3

REPORT INFORMATION
  Report Type: 
  Country: None (occurrence: None)
  Receive Date: 20110927
  Receipt Date: 20110913
  Transmission Date: 20111222
  Serious: Yes (Hospitalization, Other)
  Sender: FDA-Public Use
  Company Number: 2011MA013453

PATIENT
  Age: 65 Year
  Sex: Male

DRUGS (11)
  1. LEVOTHYROXINE SODIUM [Concomitant]
  2. ASPIRIN [Concomitant]
  3. HYDRALAZINE HCL [Concomitant]
  4. GLIPIZIDE [Concomitant]
  5. AMLODIPINE [Concomitant]
  6. LASIX [Concomitant]
  7. CALCIUM CARBONATE [Concomitant]
  8. SIMVASTATIN [Concomitant]
  9. ACYCLOVIR [Suspect]
     Indication: HERPES ZOSTER
     Dosage: 500 MG;5 TIMES A DAY;PO
     Route: 048
  10. BENAZEPRIL HYDROCHLORIDE [Concomitant]
  11. PHENYTOIN [Concomitant]

REACTIONS (18)
  - APHASIA [None]
  - MENTAL IMPAIRMENT [None]
  - RASH [None]
  - TOXICITY TO VARIOUS AGENTS [None]
  - DRUG LEVEL BELOW THERAPEUTIC [None]
  - HYPOTHYROIDISM [None]
  - GAIT DISTURBANCE [None]
  - MEMORY IMPAIRMENT [None]
  - BLOOD PRESSURE INCREASED [None]
  - DYSARTHRIA [None]
  - NYSTAGMUS [None]
  - ATAXIA [None]
  - MENTAL STATUS CHANGES [None]
  - DYSSTASIA [None]
  - CONFUSIONAL STATE [None]
  - DIALYSIS [None]
  - SOMNOLENCE [None]
  - SPEECH DISORDER [None]
